FAERS Safety Report 9586220 (Version 1)
Quarter: 2013Q4

REPORT INFORMATION
  Report Type: Spontaneous
  Country: GB (occurrence: GB)
  Receive Date: 20131003
  Receipt Date: 20131003
  Transmission Date: 20140711
  Serious: Yes (Hospitalization)
  Sender: FDA-Public Use
  Company Number: GB-JNJFOC-20131001015

PATIENT
  Age: 37 Year
  Sex: Male
  Weight: 93 kg

DRUGS (3)
  1. XARELTO [Suspect]
     Indication: HYPERCOAGULATION
     Route: 048
     Dates: start: 20130724, end: 20130818
  2. XARELTO [Suspect]
     Indication: PULMONARY EMBOLISM
     Route: 048
     Dates: start: 20130724, end: 20130818
  3. WARFARIN [Concomitant]
     Indication: ANTICOAGULANT THERAPY
     Route: 065

REACTIONS (5)
  - Mass [Recovered/Resolved]
  - Hypoaesthesia [Recovered/Resolved]
  - Muscle tightness [Recovered/Resolved]
  - Headache [Unknown]
  - Facial pain [Unknown]
